FAERS Safety Report 4788816-3 (Version None)
Quarter: 2005Q4

REPORT INFORMATION
  Report Type: 
  Country: None (occurrence: None)
  Receive Date: 20051004
  Receipt Date: 20050921
  Transmission Date: 20060501
  Serious: Yes (Death, Other)
  Sender: FDA-Public Use
  Company Number: 2005130440

PATIENT
  Age: 79 Year
  Sex: Male

DRUGS (3)
  1. VFEND [Suspect]
     Indication: BRONCHOPULMONARY ASPERGILLOSIS
     Dosage: 400 MG , INTRAVENOUS
     Route: 042
     Dates: start: 20050714, end: 20050806
  2. VFEND [Suspect]
     Indication: BRONCHOPULMONARY ASPERGILLOSIS
     Dosage: 400 MG, ORAL
     Route: 048
     Dates: start: 20050819, end: 20050913
  3. CIPROFLOXACIN HYDROCHLORIDE [Suspect]
     Indication: ILL-DEFINED DISORDER
     Dates: end: 20050911

REACTIONS (9)
  - BRADYCARDIA [None]
  - CARDIAC ARREST [None]
  - DYSPNOEA [None]
  - ENCEPHALOPATHY [None]
  - HYPOGLYCAEMIA [None]
  - LOSS OF CONSCIOUSNESS [None]
  - MALAISE [None]
  - MENTAL DISORDER [None]
  - PYREXIA [None]
